FAERS Safety Report 25673903 (Version 3)
Quarter: 2025Q3

REPORT INFORMATION
  Report Type: Spontaneous
  Country: US (occurrence: US)
  Receive Date: 20250813
  Receipt Date: 20250903
  Transmission Date: 20251020
  Serious: No
  Sender: CSL BEHRING
  Company Number: US-BEH-2025215539

PATIENT
  Age: 50 Year
  Sex: Female

DRUGS (2)
  1. PRIVIGEN [Suspect]
     Active Substance: HUMAN IMMUNOGLOBULIN G
     Indication: Immune tolerance induction
     Route: 065
     Dates: start: 202401
  2. PRIVIGEN [Suspect]
     Active Substance: HUMAN IMMUNOGLOBULIN G
     Dosage: 60 G, 2 DOSES QMT
     Route: 042

REACTIONS (3)
  - Skin reaction [Not Recovered/Not Resolved]
  - Rash [Unknown]
  - Off label use [Unknown]

NARRATIVE: CASE EVENT DATE: 20240101
